FAERS Safety Report 14065511 (Version 1)
Quarter: 2017Q4

REPORT INFORMATION
  Report Type: Spontaneous
  Country: ES (occurrence: ES)
  Receive Date: 20171009
  Receipt Date: 20171009
  Transmission Date: 20180321
  Serious: Yes (Hospitalization)
  Sender: FDA-Public Use
  Company Number: ES-JNJFOC-20170930878

PATIENT
  Age: 67 Year
  Sex: Female

DRUGS (1)
  1. INFLIXIMAB, RECOMBINANT [Suspect]
     Active Substance: INFLIXIMAB
     Indication: COLITIS ULCERATIVE
     Dosage: 0,2,6,THEN Q 8 WEEKS
     Route: 042
     Dates: start: 2003

REACTIONS (1)
  - Meningitis listeria [Unknown]

NARRATIVE: CASE EVENT DATE: 200801
